FAERS Safety Report 10775715 (Version 1)
Quarter: 2015Q1

REPORT INFORMATION
  Report Type: Spontaneous
  Country: US (occurrence: None)
  Receive Date: 20150205
  Receipt Date: 20150205
  Transmission Date: 20150721
  Serious: Yes (Hospitalization)
  Sender: FDA-Public Use
  Company Number: 201501139

PATIENT
  Age: 69 Year
  Sex: Male

DRUGS (1)
  1. TESTIM [Suspect]
     Active Substance: TESTOSTERONE
     Indication: BLOOD TESTOSTERONE DECREASED
     Route: 062
     Dates: start: 20080707, end: 20130816

REACTIONS (5)
  - Economic problem [None]
  - Anhedonia [None]
  - Fear [None]
  - Acute myocardial infarction [None]
  - Emotional distress [None]

NARRATIVE: CASE EVENT DATE: 20090826
